FAERS Safety Report 23361896 (Version 2)
Quarter: 2024Q1

REPORT INFORMATION
  Report Type: Report from Study
  Country: US (occurrence: US)
  Receive Date: 20240103
  Receipt Date: 20240202
  Transmission Date: 20240410
  Serious: Yes (Hospitalization)
  Sender: FDA-Public Use
  Company Number: US-BAYER-2023A152529

PATIENT
  Age: 31 Year
  Sex: Female
  Weight: 81.179 kg

DRUGS (22)
  1. ADEMPAS [Suspect]
     Active Substance: RIOCIGUAT
     Indication: Pulmonary arterial hypertension
     Dosage: UNK
     Dates: start: 20231011
  2. ADEMPAS [Suspect]
     Active Substance: RIOCIGUAT
     Indication: Pulmonary arterial hypertension
     Dosage: 1 MG, TID
     Route: 048
  3. ADEMPAS [Suspect]
     Active Substance: RIOCIGUAT
     Indication: Pulmonary arterial hypertension
     Dosage: 1.5 MG, TID
     Route: 048
     Dates: start: 20231011
  4. REMODULIN [Suspect]
     Active Substance: TREPROSTINIL
     Dosage: 14 NG/KG/MIN
  5. OPSUMIT [Concomitant]
     Active Substance: MACITENTAN
  6. FUROSEMIDE [Concomitant]
     Active Substance: FUROSEMIDE
  7. OMEPRAZOLE [Concomitant]
     Active Substance: OMEPRAZOLE
  8. SODIUM CHLORIDE [Concomitant]
     Active Substance: SODIUM CHLORIDE
  9. SERTRALINE HYDROCHLORIDE [Concomitant]
     Active Substance: SERTRALINE HYDROCHLORIDE
  10. FLUTICASONE PROPIONATE [Concomitant]
     Active Substance: FLUTICASONE PROPIONATE
  11. VENTOLIN HFA [Concomitant]
     Active Substance: ALBUTEROL SULFATE
  12. KETAMINE HYDROCHLORIDE [Concomitant]
     Active Substance: KETAMINE HYDROCHLORIDE
  13. LECITHIN [Concomitant]
     Active Substance: LECITHIN
  14. FLUTICASONE PROPIONATE [Concomitant]
     Active Substance: FLUTICASONE PROPIONATE
  15. CLONIDINE [Concomitant]
     Active Substance: CLONIDINE
  16. KETOPROFEN [Concomitant]
     Active Substance: KETOPROFEN
  17. SPIRONOLACTONE [Concomitant]
     Active Substance: SPIRONOLACTONE
  18. ALBUTEROL [Concomitant]
     Active Substance: ALBUTEROL
  19. LIDOCAINE HYDROCHLORIDE [Concomitant]
     Active Substance: LIDOCAINE HYDROCHLORIDE
  20. AMITRIPTYLINE [Concomitant]
     Active Substance: AMITRIPTYLINE
  21. GABAPENTIN [Concomitant]
     Active Substance: GABAPENTIN
  22. POLOXAMER [Concomitant]
     Active Substance: POLOXAMER

REACTIONS (10)
  - Rash pruritic [None]
  - Hospitalisation [None]
  - Dyspnoea [None]
  - Hospitalisation [None]
  - Hospitalisation [None]
  - Urticaria [None]
  - Irritability [None]
  - Insomnia [None]
  - Nausea [None]
  - Pain [None]

NARRATIVE: CASE EVENT DATE: 20231031
